FAERS Safety Report 10725360 (Version 2)
Quarter: 2015Q1

REPORT INFORMATION
  Report Type: Spontaneous
  Country: US (occurrence: US)
  Receive Date: 20150121
  Receipt Date: 20150126
  Transmission Date: 20150721
  Serious: Yes (Other)
  Sender: FDA-Public Use
  Company Number: US-MERCK-1501USA006278

PATIENT
  Age: 39 Year
  Sex: Female
  Weight: 79.82 kg

DRUGS (1)
  1. LIPTRUZET [Suspect]
     Active Substance: ATORVASTATIN CALCIUM\EZETIMIBE
     Indication: HIGH DENSITY LIPOPROTEIN NORMAL
     Dosage: STRENGHT:10/10, DOSE:10/10 DAILY
     Route: 048
     Dates: start: 20131201

REACTIONS (2)
  - Fatigue [Not Recovered/Not Resolved]
  - Migraine [Not Recovered/Not Resolved]

NARRATIVE: CASE EVENT DATE: 20140304
